FAERS Safety Report 8850600 (Version 2)
Quarter: 2012Q4

REPORT INFORMATION
  Report Type: 
  Country: US (occurrence: US)
  Receive Date: 20121019
  Receipt Date: 20121112
  Transmission Date: 20130627
  Serious: Yes (Hospitalization)
  Sender: FDA-Public Use
  Company Number: US-ASTRAZENECA-2012SE78192

PATIENT
  Age: 66 Year
  Sex: Female

DRUGS (4)
  1. SYMBICORT PMDI [Suspect]
     Indication: INCREASED UPPER AIRWAY SECRETION
     Route: 055
  2. SYMBICORT PMDI [Suspect]
     Indication: COUGH
     Route: 055
  3. MUCINEX [Concomitant]
  4. NEBULIZER [Concomitant]

REACTIONS (3)
  - Increased bronchial secretion [Unknown]
  - Dyspnoea [Unknown]
  - Drug dose omission [Unknown]
